FAERS Safety Report 16426120 (Version 6)
Quarter: 2019Q3

REPORT INFORMATION
  Report Type: Report from Study
  Country: DE (occurrence: DE)
  Receive Date: 20190613
  Receipt Date: 20190912
  Transmission Date: 20191004
  Serious: Yes (Hospitalization, Other)
  Sender: FDA-Public Use
  Company Number: DE-MYLANLABS-2019M1054285

PATIENT
  Age: 65 Year
  Sex: Male
  Weight: 74 kg

DRUGS (11)
  1. ENTRESTO [Suspect]
     Active Substance: SACUBITRIL\VALSARTAN
     Dosage: 100 MILLIGRAM, BID,200 MILLIGRAM, QD 100 MG (SACUBITRIL 49 MG, VALSARTAN 51 MG), BID
     Route: 048
     Dates: start: 20181207
  2. DICLOFENAC [Suspect]
     Active Substance: DICLOFENAC
     Indication: GOUT
     Dosage: UNK
     Route: 048
     Dates: start: 20180826
  3. ENTRESTO [Suspect]
     Active Substance: SACUBITRIL\VALSARTAN
     Dosage: 200 MILLIGRAM, BID,200 MG (SACUBITRIL 97 MG/ VALSARTAN 103 MG), BID
     Route: 048
     Dates: start: 20180903, end: 20181206
  4. ENTRESTO [Suspect]
     Active Substance: SACUBITRIL\VALSARTAN
     Dosage: 100 MILLIGRAM, BID,2 DOSAGE FORM, QD,100 MG (SACUBITRIL 49 MG/ VALSARTAN 51 MG), BID
     Route: 048
     Dates: start: 20170517, end: 20171008
  5. ENTRESTO [Suspect]
     Active Substance: SACUBITRIL\VALSARTAN
     Indication: CARDIAC FAILURE
     Dosage: 200 MILLIGRAM, QD, 100 MG(SACUBITRIL 49 MG/ VALSARTAN 51 MG) , BI
     Route: 048
     Dates: start: 20170527, end: 20171008
  6. ENTRESTO [Suspect]
     Active Substance: SACUBITRIL\VALSARTAN
     Dosage: 200 MILLIGRAM, BID,400 MILLIGRAM, QD,200 MG(SACUBITRIL 97 MG/ VALSARTAN 103 MG), BID
     Route: 048
     Dates: start: 20171009, end: 20180826
  7. ENTRESTO [Suspect]
     Active Substance: SACUBITRIL\VALSARTAN
     Dosage: 25 OT, UNK
     Route: 048
     Dates: start: 20180612, end: 20180826
  8. NEBIVOLOL                          /01339102/ [Concomitant]
     Active Substance: NEBIVOLOL
     Indication: CARDIAC FAILURE
     Dosage: 5 DF, UNK
     Route: 048
     Dates: start: 20180608
  9. DIGITOXIN [Concomitant]
     Active Substance: DIGITOXIN
     Indication: CARDIAC FAILURE
     Dosage: 0.07 OT, UNK
     Route: 048
     Dates: start: 20180608
  10. ENTRESTO [Suspect]
     Active Substance: SACUBITRIL\VALSARTAN
     Dosage: 2 DOSAGE FORM, QD, 1 DF, BID (97 MG SACUBITRI/ 103 MG VALSARTAN)
     Route: 048
     Dates: start: 20180607, end: 20180615
  11. EPLERENONE. [Concomitant]
     Active Substance: EPLERENONE
     Indication: CARDIAC FAILURE
     Dosage: 25 OT, UNK
     Route: 048
     Dates: start: 20180612, end: 20180826

REACTIONS (16)
  - Gouty arthritis [Recovering/Resolving]
  - Cardiac failure [Recovered/Resolved]
  - Mitral valve incompetence [Recovering/Resolving]
  - Troponin I increased [Unknown]
  - Coronary artery disease [Recovering/Resolving]
  - Concomitant disease aggravated [Recovering/Resolving]
  - Mental disorder [Not Recovered/Not Resolved]
  - Renal failure [Recovering/Resolving]
  - Type 2 diabetes mellitus [Not Recovered/Not Resolved]
  - Infective exacerbation of chronic obstructive airways disease [Recovering/Resolving]
  - Hyperuricaemia [Not Recovered/Not Resolved]
  - Panic attack [Not Recovered/Not Resolved]
  - Depression [Unknown]
  - Steroid diabetes [Not Recovered/Not Resolved]
  - Dyspnoea [Not Recovered/Not Resolved]
  - Epistaxis [Recovered/Resolved]

NARRATIVE: CASE EVENT DATE: 20180607
